FAERS Safety Report 6138547-2 (Version None)
Quarter: 2009Q1

REPORT INFORMATION
  Report Type: 
  Country: None (occurrence: None)
  Receive Date: 20090331
  Receipt Date: 20090130
  Transmission Date: 20090719
  Serious: Yes (Death)
  Sender: FDA-Public Use
  Company Number: US-TYCO HEALTHCARE/MALLINCKRODT-T200900526

PATIENT
  Age: 73 Year
  Sex: Male

DRUGS (4)
  1. ACETAMINOPHEN AND HYDROCODONE BITARTRATE [Suspect]
     Route: 048
  2. ZOLPIDEM [Suspect]
     Route: 048
  3. PROPOXYPHENE HCL CAP [Suspect]
     Route: 048
  4. CODEINE SUL TAB [Suspect]
     Route: 048

REACTIONS (1)
  - COMPLETED SUICIDE [None]
